FAERS Safety Report 25183565 (Version 2)
Quarter: 2025Q2

REPORT INFORMATION
  Report Type: Report from Study
  Country: EG (occurrence: EG)
  Receive Date: 20250410
  Receipt Date: 20250514
  Transmission Date: 20250717
  Serious: Yes (Life-Threatening, Hospitalization, Other)
  Sender: NOVARTIS
  Company Number: EG-002147023-NVSC2024EG195473

PATIENT
  Age: 56 Year
  Sex: Female

DRUGS (6)
  1. KISQALI [Suspect]
     Active Substance: RIBOCICLIB SUCCINATE
     Indication: Breast cancer metastatic
     Dosage: 2 TABLETS OF 200 MG DAILY FOR 3 WEEKS MONTHLY, 1 WEEK OFF)
     Route: 048
     Dates: start: 202408, end: 20241018
  2. KISQALI [Suspect]
     Active Substance: RIBOCICLIB SUCCINATE
     Dosage: 2 TABLETS OF 200 MG DAILY FOR 3 WEEKS MONTHLY, 1 WEEK OFF
     Route: 048
     Dates: start: 20241101
  3. KISQALI [Suspect]
     Active Substance: RIBOCICLIB SUCCINATE
     Dosage: 2 TABLETS OF 200 MG DAILY FOR 3 WEEKS MONTHLY, 1 WEEK OFF
     Route: 048
     Dates: start: 20250215, end: 20250315
  4. KISQALI [Suspect]
     Active Substance: RIBOCICLIB SUCCINATE
     Dosage: 200 MG, QD, 1 TABLETS ONE TABLET ONCE PER DAY
     Route: 048
     Dates: start: 20250511
  5. ARIMIDEX [Concomitant]
     Active Substance: ANASTROZOLE
     Indication: Breast cancer metastatic
     Dosage: 1 DOSAGE FORM, QD (TABLET)
     Route: 048
     Dates: start: 20240805
  6. FEMARA [Concomitant]
     Active Substance: LETROZOLE
     Indication: Neoplasm malignant
     Dosage: 2.5 MG, QD (TABLET) (STRENGTH:2.5 MG)
     Route: 048

REACTIONS (14)
  - Heart rate increased [Recovered/Resolved]
  - Thrombosis [Recovered/Resolved]
  - Pulmonary thrombosis [Recovering/Resolving]
  - Dyspnoea [Recovered/Resolved]
  - Inappropriate schedule of product administration [Unknown]
  - Off label use [Unknown]
  - Cartilage injury [Unknown]
  - Pain in extremity [Recovering/Resolving]
  - Fatigue [Unknown]
  - Dizziness [Unknown]
  - Sciatica [Unknown]
  - Eczema [Unknown]
  - Rash [Recovered/Resolved]
  - Rash [Not Recovered/Not Resolved]

NARRATIVE: CASE EVENT DATE: 20240801
